FAERS Safety Report 4339513-X (Version None)
Quarter: 2004Q2

REPORT INFORMATION
  Report Type: 
  Country: None (occurrence: None)
  Receive Date: 20040415
  Receipt Date: 20031111
  Transmission Date: 20050107
  Serious: Yes (Hospitalization)
  Sender: FDA-Public Use
  Company Number: PHEH2003US10472

PATIENT
  Age: 64 Year
  Sex: Male

DRUGS (14)
  1. ZELNORM [Suspect]
     Indication: IMPAIRED GASTRIC EMPTYING
     Dosage: 6 MG, ONCE2SDO
     Route: 048
     Dates: start: 20030401, end: 20030402
  2. TORSEMIDE [Concomitant]
     Dosage: 80 MG, BID
  3. INSULIN [Concomitant]
     Dosage: 20 IU PM 10 IU AM/DAY
  4. SIMVASTATIN [Concomitant]
     Dosage: 40 MG, UNK
  5. LOSARTAN [Concomitant]
  6. ISORDIL [Concomitant]
     Dosage: 30 MG, TID
  7. PLAVIX [Concomitant]
     Dosage: 75 MG/DAY
  8. CLONIDINE [Concomitant]
     Dosage: .3 MG, Q2H
     Route: 062
  9. CELEXA [Concomitant]
     Dosage: 40 MG/DAY
  10. CLONAZEPAM [Concomitant]
     Dosage: .25 MG, BID
  11. METOPROLOL [Concomitant]
     Dosage: 75 MG, UNK
  12. ASPIRIN [Concomitant]
     Dosage: 325 MG, UNK
  13. LEVOFLOXACIN [Concomitant]
     Indication: URINARY TRACT INFECTION
     Dosage: 250 MG/DAY
  14. FELODIPINE [Concomitant]
     Dosage: 10 MG/DAY

REACTIONS (16)
  - BLOOD CREATINE PHOSPHOKINASE INCREASED [None]
  - BLOOD CREATINE PHOSPHOKINASE MB INCREASED [None]
  - BLOOD PRESSURE INCREASED [None]
  - BLOOD PRESSURE SYSTOLIC INCREASED [None]
  - CARDIOMEGALY [None]
  - CHEST PAIN [None]
  - FEELING ABNORMAL [None]
  - MARKEDLY REDUCED DIETARY INTAKE [None]
  - MEDICATION ERROR [None]
  - MYOCARDIAL INFARCTION [None]
  - NAUSEA [None]
  - PHARMACEUTICAL PRODUCT COMPLAINT [None]
  - TROPONIN INCREASED [None]
  - URINARY TRACT INFECTION [None]
  - VOMITING [None]
  - WEIGHT DECREASED [None]
